FAERS Safety Report 6436415-X (Version None)
Quarter: 2009Q4

REPORT INFORMATION
  Report Type: 
  Country: None (occurrence: None)
  Receive Date: 20091111
  Receipt Date: 20091026
  Transmission Date: 20100525
  Serious: Yes (Other)
  Sender: FDA-Public Use
  Company Number: PHEH2009US09219

PATIENT
  Sex: Male

DRUGS (5)
  1. LOTREL [Suspect]
     Dosage: 5/20MG, UNK
  2. DIOVAN [Suspect]
  3. ZOCOR [Suspect]
  4. ZELCOR [Concomitant]
  5. LIPITOR [Concomitant]
     Indication: BLOOD CHOLESTEROL

REACTIONS (7)
  - DIZZINESS [None]
  - EYE SWELLING [None]
  - HYPERSENSITIVITY [None]
  - HYPERTENSION [None]
  - OROPHARYNGEAL PAIN [None]
  - PRESYNCOPE [None]
  - SWOLLEN TONGUE [None]
